FAERS Safety Report 5013960-5 (Version None)
Quarter: 2006Q2

REPORT INFORMATION
  Report Type: 
  Country: None (occurrence: None)
  Receive Date: 20060525
  Receipt Date: 20060520
  Transmission Date: 20061013
  Serious: Yes (Hospitalization)
  Sender: FDA-Public Use
  Company Number: 221251

PATIENT
  Age: 61 Year
  Sex: Male

DRUGS (4)
  1. RITUXIMAB(RITUXIMAB) CONC FOR SOLUTION FOR INFUSION [Suspect]
     Indication: NON-HODGKIN'S LYMPHOMA
     Dosage: 660 MG, 1/WEEK, INTRAVENOUS
     Route: 042
     Dates: start: 20051122, end: 20051213
  2. DIAZEPAM [Concomitant]
  3. OMEPRAZOLE [Concomitant]
  4. DIAZEPAM [Concomitant]

REACTIONS (9)
  - BLOOD KETONE BODY [None]
  - C-REACTIVE PROTEIN INCREASED [None]
  - CATARACT [None]
  - HAEMOGLOBIN ABNORMAL [None]
  - INFECTION [None]
  - MENINGITIS [None]
  - PLATELET COUNT INCREASED [None]
  - PROTEIN URINE PRESENT [None]
  - SINUSITIS [None]
